FAERS Safety Report 17754487 (Version 4)
Quarter: 2020Q2

REPORT INFORMATION
  Report Type: Report from Study
  Country: DK (occurrence: DK)
  Receive Date: 20200506
  Receipt Date: 20200617
  Transmission Date: 20200714
  Serious: Yes (Hospitalization)
  Sender: FDA-Public Use
  Company Number: DK-SEATTLE GENETICS-2020SGN02041

PATIENT
  Age: 20 Year
  Sex: Female
  Weight: 66.4 kg

DRUGS (4)
  1. BRENTUXIMAB VEDOTIN [Suspect]
     Active Substance: BRENTUXIMAB VEDOTIN
     Indication: HODGKIN^S DISEASE
     Dosage: 80.38 MILLIGRAM
     Route: 042
     Dates: start: 20200430
  2. ADRIAMYCIN [Suspect]
     Active Substance: DOXORUBICIN HYDROCHLORIDE
     Indication: HODGKIN^S DISEASE
     Dosage: 44.50 MILLIGRAM
     Route: 042
     Dates: start: 20200430
  3. DACARBAZINE. [Suspect]
     Active Substance: DACARBAZINE
     Indication: HODGKIN^S DISEASE
     Dosage: 675.5 MILLIGRAM
     Route: 042
     Dates: start: 20200430
  4. VINBLASTINE [Suspect]
     Active Substance: VINBLASTINE
     Indication: HODGKIN^S DISEASE
     Dosage: 10.68 MILLIGRAM
     Route: 042
     Dates: start: 20200430

REACTIONS (3)
  - Stomatitis [Recovered/Resolved]
  - Infection [Recovered/Resolved]
  - Ileus [Recovered/Resolved]

NARRATIVE: CASE EVENT DATE: 20200503
